FAERS Safety Report 7289535-4 (Version None)
Quarter: 2011Q1

REPORT INFORMATION
  Report Type: 
  Country: None (occurrence: None)
  Receive Date: 20110213
  Receipt Date: 20110209
  Transmission Date: 20110831
  Serious: Yes (Life-Threatening, Other)
  Sender: FDA-Public Use
  Company Number: CN-BRISTOL-MYERS SQUIBB COMPANY-15152820

PATIENT
  Age: 62 Year
  Sex: Male
  Weight: 55 kg

DRUGS (3)
  1. CETUXIMAB [Suspect]
     Indication: HEAD AND NECK CANCER
     Route: 042
     Dates: start: 20100315, end: 20100612
  2. CISPLATIN [Suspect]
     Indication: HEAD AND NECK CANCER
     Route: 042
     Dates: start: 20100315, end: 20100612
  3. FLUOROURACIL [Suspect]
     Indication: HEAD AND NECK CANCER
     Dosage: 750MG/M2/DAY AS CONTIN INF OVER 24H FROM D1 TO D5.
     Route: 042
     Dates: start: 20100315, end: 20100612

REACTIONS (3)
  - STAPHYLOCOCCAL INFECTION [None]
  - ELECTROLYTE IMBALANCE [None]
  - TOXIC ENCEPHALOPATHY [None]
